FAERS Safety Report 18346619 (Version 24)
Quarter: 2024Q4

REPORT INFORMATION
  Report Type: Spontaneous
  Country: CA (occurrence: CA)
  Receive Date: 20201006
  Receipt Date: 20241120
  Transmission Date: 20250114
  Serious: Yes (Other)
  Sender: CELLTRION
  Company Number: CA-CELLTRION INC.-2018CA023077

PATIENT

DRUGS (69)
  1. INFLECTRA [Suspect]
     Active Substance: INFLIXIMAB-DYYB
     Indication: Rheumatoid arthritis
     Dosage: 6 MG/KG, 0, 2, 6 THEN EVERY 6 WEEKS
     Route: 042
  2. INFLECTRA [Suspect]
     Active Substance: INFLIXIMAB-DYYB
     Dosage: 6 MG/KG, 0, 2, 6 THEN EVERY 6 WEEKS
     Route: 042
     Dates: start: 20181003, end: 20181227
  3. INFLECTRA [Suspect]
     Active Substance: INFLIXIMAB-DYYB
     Dosage: 6 MG/KG, MAINTENANCE EVERY 6 WEEKS/WEEKS 0, 2, 6 AND Q (EVERY) 6 WEEKS THEREAFTER
     Route: 042
     Dates: start: 20181003
  4. INFLECTRA [Suspect]
     Active Substance: INFLIXIMAB-DYYB
     Dosage: 6 MG/KG, WEEKS 0, 2, 6 THEN EVERY 6 WEEKS
     Route: 042
     Dates: start: 20181003
  5. INFLECTRA [Suspect]
     Active Substance: INFLIXIMAB-DYYB
     Dosage: 6 MG/KG, 0, 2, 6 THEN EVERY 6 WEEKS
     Route: 042
     Dates: start: 20181024
  6. INFLECTRA [Suspect]
     Active Substance: INFLIXIMAB-DYYB
     Dosage: 6 MG/KG, 0, 2, 6 THEN EVERY 6 WEEKS
     Route: 042
     Dates: start: 20181227
  7. INFLECTRA [Suspect]
     Active Substance: INFLIXIMAB-DYYB
     Dosage: 6 MG/KG, 0, 2, 6 THEN EVERY 6 WEEKS
     Route: 042
     Dates: start: 20181227
  8. INFLECTRA [Suspect]
     Active Substance: INFLIXIMAB-DYYB
     Dosage: 6 MG/KG, EVERY 4 WEEKS
     Route: 042
     Dates: start: 20190125
  9. INFLECTRA [Suspect]
     Active Substance: INFLIXIMAB-DYYB
     Dosage: 6 MG/KG, EVERY 4 WEEKS
     Route: 042
     Dates: start: 20190225
  10. INFLECTRA [Suspect]
     Active Substance: INFLIXIMAB-DYYB
     Dosage: 5.88 MG/KG, EVERY 4 WEEKS
     Route: 042
     Dates: start: 20190322
  11. INFLECTRA [Suspect]
     Active Substance: INFLIXIMAB-DYYB
     Dosage: 6 MG/KG, EVERY 4 WEEKS
     Route: 042
     Dates: start: 20190613
  12. INFLECTRA [Suspect]
     Active Substance: INFLIXIMAB-DYYB
     Dosage: 6 MG/KG, EVERY 4 WEEKS
     Route: 042
     Dates: start: 20190809
  13. INFLECTRA [Suspect]
     Active Substance: INFLIXIMAB-DYYB
     Dosage: 6 MG/KG, EVERY 4 WEEKS
     Route: 042
     Dates: start: 20190919
  14. INFLECTRA [Suspect]
     Active Substance: INFLIXIMAB-DYYB
     Dosage: 6 MG/KG, EVERY 4 WEEKS
     Route: 042
     Dates: start: 20200103
  15. INFLECTRA [Suspect]
     Active Substance: INFLIXIMAB-DYYB
     Dosage: 6 MG/KG, EVERY 4 WEEKS
     Route: 042
     Dates: start: 20200523
  16. INFLECTRA [Suspect]
     Active Substance: INFLIXIMAB-DYYB
     Dosage: 6 MG/KG, EVERY 4 WEEKS
     Route: 042
     Dates: start: 20200620
  17. INFLECTRA [Suspect]
     Active Substance: INFLIXIMAB-DYYB
     Dosage: 6 MG/KG, EVERY 4 WEEKS
     Route: 042
     Dates: start: 20200718
  18. INFLECTRA [Suspect]
     Active Substance: INFLIXIMAB-DYYB
     Dosage: 6 MG/KG, EVERY 4 WEEKS
     Route: 042
     Dates: start: 20200912
  19. INFLECTRA [Suspect]
     Active Substance: INFLIXIMAB-DYYB
     Dosage: 6 MG/KG, EVERY 4 WEEKS
     Route: 042
     Dates: start: 20210102
  20. INFLECTRA [Suspect]
     Active Substance: INFLIXIMAB-DYYB
     Dosage: 6 MG/KG, EVERY 4 WEEKS
     Route: 042
     Dates: start: 20210102
  21. INFLECTRA [Suspect]
     Active Substance: INFLIXIMAB-DYYB
     Dosage: 6 MG/KG, EVERY 4 WEEKS
     Route: 042
     Dates: start: 20210102
  22. INFLECTRA [Suspect]
     Active Substance: INFLIXIMAB-DYYB
     Dosage: 6 MG/KG, EVERY 4 WEEKS
     Route: 042
     Dates: start: 20210227
  23. INFLECTRA [Suspect]
     Active Substance: INFLIXIMAB-DYYB
     Dosage: 6 MG/KG, EVERY 4 WEEKS
     Route: 042
     Dates: start: 20210327
  24. INFLECTRA [Suspect]
     Active Substance: INFLIXIMAB-DYYB
     Dosage: 6 MG/KG, EVERY 4 WEEKS
     Route: 042
     Dates: start: 20210424
  25. INFLECTRA [Suspect]
     Active Substance: INFLIXIMAB-DYYB
     Dosage: 6 MG/KG, EVERY 4 WEEKS
     Route: 042
     Dates: start: 20210522
  26. INFLECTRA [Suspect]
     Active Substance: INFLIXIMAB-DYYB
     Dosage: 6 MG/KG, EVERY 4 WEEKS
     Route: 042
     Dates: start: 20211015
  27. INFLECTRA [Suspect]
     Active Substance: INFLIXIMAB-DYYB
     Dosage: 6 MG/KG, EVERY 4 WEEKS
     Route: 042
     Dates: start: 20211112
  28. INFLECTRA [Suspect]
     Active Substance: INFLIXIMAB-DYYB
     Dosage: 6 MG/KG, EVERY 4 WEEKS
     Route: 042
     Dates: start: 20211211
  29. INFLECTRA [Suspect]
     Active Substance: INFLIXIMAB-DYYB
     Dosage: 6 MG/KG, EVERY 4 WEEKS
     Route: 042
     Dates: start: 20220212
  30. INFLECTRA [Suspect]
     Active Substance: INFLIXIMAB-DYYB
     Dosage: 6 MG/KG, EVERY 4 WEEKS
     Route: 042
     Dates: start: 20220507
  31. INFLECTRA [Suspect]
     Active Substance: INFLIXIMAB-DYYB
     Dosage: 6 MG/KG, EVERY 4 WEEKS
     Route: 042
     Dates: start: 20220706
  32. INFLECTRA [Suspect]
     Active Substance: INFLIXIMAB-DYYB
     Dosage: 6 MG/KG, EVERY 4 WEEKS
     Route: 042
     Dates: start: 20220804
  33. INFLECTRA [Suspect]
     Active Substance: INFLIXIMAB-DYYB
     Dosage: 6 MG/KG, EVERY 4 WEEKS
     Route: 042
     Dates: start: 20220923
  34. INFLECTRA [Suspect]
     Active Substance: INFLIXIMAB-DYYB
     Dosage: 6 MG/KG, EVERY 4 WEEKS
     Route: 042
     Dates: start: 20230211
  35. INFLECTRA [Suspect]
     Active Substance: INFLIXIMAB-DYYB
     Dosage: 6 MG/KG, EVERY 4 WEEKS
     Route: 042
     Dates: start: 20230824
  36. INFLECTRA [Suspect]
     Active Substance: INFLIXIMAB-DYYB
     Dosage: 570 MG, (6 MG/KG), AFTER 6 WEEKS (PRESCRIBED TREATMENTS ARE EVERY 4 WEEKS)
     Route: 042
     Dates: start: 20231005
  37. INFLECTRA [Suspect]
     Active Substance: INFLIXIMAB-DYYB
     Dosage: 570 MG, (6 MG/KG), AFTER 6 WEEKS (PRESCRIBED TREATMENTS ARE EVERY 4 WEEKS)
     Route: 042
     Dates: start: 20241010
  38. INFLECTRA [Suspect]
     Active Substance: INFLIXIMAB-DYYB
     Dosage: 570 MG, (6 MG/KG) 4 WEEKS
     Route: 042
     Dates: start: 20241108
  39. ACETAMINOPHEN [Concomitant]
     Active Substance: ACETAMINOPHEN
     Indication: Premedication
     Dosage: 625 MG, UNK
     Route: 048
     Dates: start: 20190613, end: 20190613
  40. ACETAMINOPHEN [Concomitant]
     Active Substance: ACETAMINOPHEN
     Dosage: 650 MG, UNK
     Route: 048
     Dates: start: 20200620, end: 20200620
  41. ACETAMINOPHEN [Concomitant]
     Active Substance: ACETAMINOPHEN
     Dosage: 650 MG, UNK
     Dates: start: 20200718, end: 20200718
  42. ACETAMINOPHEN [Concomitant]
     Active Substance: ACETAMINOPHEN
     Dosage: 650 MG, UNK
     Route: 048
     Dates: start: 20210102, end: 20210102
  43. ACETAMINOPHEN [Concomitant]
     Active Substance: ACETAMINOPHEN
     Dosage: 650 MG, UNK
     Route: 048
     Dates: start: 20210327, end: 20210327
  44. ACETAMINOPHEN [Concomitant]
     Active Substance: ACETAMINOPHEN
     Dosage: 650 MG, UNK
     Route: 048
     Dates: start: 20210522, end: 20210522
  45. ACETAMINOPHEN [Concomitant]
     Active Substance: ACETAMINOPHEN
     Dosage: 650 MG
     Route: 048
     Dates: start: 20211112, end: 20211112
  46. ACETAMINOPHEN [Concomitant]
     Active Substance: ACETAMINOPHEN
     Dosage: 650 MG
     Route: 048
     Dates: start: 20211211, end: 20211211
  47. ACETAMINOPHEN [Concomitant]
     Active Substance: ACETAMINOPHEN
     Dosage: 650 MG
     Route: 048
     Dates: start: 20230211, end: 20230211
  48. ACETAMINOPHEN [Concomitant]
     Active Substance: ACETAMINOPHEN
     Dosage: 650 MG
     Route: 048
     Dates: start: 20241108, end: 20241108
  49. BACLOFEN [Concomitant]
     Active Substance: BACLOFEN
     Indication: Pain
     Dosage: 10 MG, AS NEEDED, 1-2 TABS (TABLETS) HS (AT BEDTIME BEFORE SLEEP) PRN
     Route: 048
     Dates: start: 20180910
  50. BACLOFEN [Concomitant]
     Active Substance: BACLOFEN
     Indication: Sleep disorder
  51. CALCIUM CARBONATE [Concomitant]
     Active Substance: CALCIUM CARBONATE
     Dosage: 1500 MG, 1X/DAY
     Route: 048
     Dates: start: 201703
  52. DIPHENHYDRAMINE [Concomitant]
     Active Substance: DIPHENHYDRAMINE
     Indication: Premedication
     Dosage: 50 MG, UNK
     Dates: start: 20190613, end: 20190613
  53. DIPHENHYDRAMINE [Concomitant]
     Active Substance: DIPHENHYDRAMINE
     Dosage: 50 MG, UNK
     Route: 048
     Dates: start: 20200620, end: 20200620
  54. DIPHENHYDRAMINE [Concomitant]
     Active Substance: DIPHENHYDRAMINE
     Dosage: 50 MG, UNK
     Dates: start: 20200718, end: 20200718
  55. DIPHENHYDRAMINE [Concomitant]
     Active Substance: DIPHENHYDRAMINE
     Dosage: 25 MG
     Route: 048
     Dates: start: 20230211, end: 20230211
  56. DIPHENHYDRAMINE [Concomitant]
     Active Substance: DIPHENHYDRAMINE
     Dosage: 25 MG
     Route: 048
     Dates: start: 20241108, end: 20241108
  57. FOLIC ACID [Concomitant]
     Active Substance: FOLIC ACID
     Dosage: 1 DF (PILL), DAILY
     Route: 048
  58. HYDROMORPHONE [Concomitant]
     Active Substance: HYDROMORPHONE
     Dosage: 1 MG, 4X/DAY
     Route: 048
     Dates: start: 20180910
  59. LEFLUNOMIDE [Concomitant]
     Active Substance: LEFLUNOMIDE
     Dosage: UNK
  60. MORPHINE [Concomitant]
     Active Substance: MORPHINE
     Indication: Pain
     Dosage: UNK
  61. METHOTREXATE [Concomitant]
     Active Substance: METHOTREXATE
     Dosage: 25 MG, WEEKLY, EQUIVALENT DOSE TO 10 PILLS AT 2.5 MG EACH, WEEKLY
     Route: 058
     Dates: start: 1998
  62. NAPROXEN [Concomitant]
     Active Substance: NAPROXEN
     Dosage: UNK, INTERMITTENTLY OVER PAST 40 YEARS
     Route: 048
     Dates: start: 1978
  63. NAPROXEN [Concomitant]
     Active Substance: NAPROXEN
     Dosage: 500 MG, 2X/DAY
     Route: 048
     Dates: start: 20180910
  64. NAPROXEN [Concomitant]
     Active Substance: NAPROXEN
     Dosage: 500 MG, 1X/DAY
     Route: 048
     Dates: start: 201907
  65. PREDNISOLONE [Concomitant]
     Active Substance: PREDNISOLONE
     Dosage: 10 MG, 1X/DAY
     Route: 048
     Dates: start: 20180910
  66. TYLENOL [Concomitant]
     Active Substance: ACETAMINOPHEN
     Indication: Arthritis
     Dosage: UNK, AS NEEDED
     Route: 048
  67. TYLENOL ARTHRITIS PAIN [Concomitant]
     Active Substance: ACETAMINOPHEN
     Dosage: UNK, AS NEEDED
     Route: 048
  68. VITAMIN D NOS [Concomitant]
     Active Substance: CHOLECALCIFEROL\ERGOCALCIFEROL
     Dosage: 10000 MG, WEEKLY
     Route: 048
     Dates: start: 201703
  69. VITAMIN D NOS [Concomitant]
     Active Substance: CHOLECALCIFEROL\ERGOCALCIFEROL
     Dosage: 20000 MG, WEEKLY, INCREASED TO 20000 MG, WEEKLY
     Route: 048
     Dates: start: 201809

REACTIONS (49)
  - Juvenile idiopathic arthritis [Unknown]
  - Osteochondral defects [Unknown]
  - Obesity [Unknown]
  - Metabolic disorder [Unknown]
  - Joint injury [Recovering/Resolving]
  - Blood pressure increased [Unknown]
  - Hypoaesthesia [Unknown]
  - Menstrual discomfort [Unknown]
  - Malaise [Not Recovered/Not Resolved]
  - Poor venous access [Unknown]
  - Pain in extremity [Not Recovered/Not Resolved]
  - Weight increased [Unknown]
  - Neuralgia [Recovering/Resolving]
  - Nerve injury [Recovering/Resolving]
  - Weight decreased [Unknown]
  - Stress [Unknown]
  - Oropharyngeal pain [Not Recovered/Not Resolved]
  - COVID-19 [Not Recovered/Not Resolved]
  - Pruritus [Unknown]
  - Nasal dryness [Unknown]
  - Nasopharyngitis [Unknown]
  - Condition aggravated [Recovering/Resolving]
  - Weight bearing difficulty [Unknown]
  - Emotional disorder [Unknown]
  - Fatigue [Unknown]
  - Osteoarthritis [Not Recovered/Not Resolved]
  - Ligament sprain [Not Recovered/Not Resolved]
  - Ligament sprain [Unknown]
  - Synovitis [Unknown]
  - Neck pain [Recovering/Resolving]
  - Hypoaesthesia [Not Recovered/Not Resolved]
  - Paraesthesia [Not Recovered/Not Resolved]
  - Spinal stenosis [Not Recovered/Not Resolved]
  - Grip strength [Unknown]
  - Influenza [Recovering/Resolving]
  - Pain in extremity [Unknown]
  - Arthralgia [Recovering/Resolving]
  - Laziness [Unknown]
  - Memory impairment [Unknown]
  - Intermittent explosive disorder [Not Recovered/Not Resolved]
  - Anxiety [Not Recovered/Not Resolved]
  - Fatigue [Recovering/Resolving]
  - Impaired quality of life [Unknown]
  - Off label use [Unknown]
  - Off label use [Unknown]
  - Off label use [Unknown]
  - Intentional product use issue [Unknown]
  - Incorrect dose administered [Unknown]
  - Inappropriate schedule of product administration [Unknown]

NARRATIVE: CASE EVENT DATE: 20190322
